FAERS Safety Report 12771107 (Version 2)
Quarter: 2016Q4

REPORT INFORMATION
  Report Type: Spontaneous
  Country: US (occurrence: US)
  Receive Date: 20160922
  Receipt Date: 20161005
  Transmission Date: 20170207
  Serious: No
  Sender: FDA-Public Use
  Company Number: US-ACTELION-A-US2014-95269

PATIENT
  Age: 71 Year
  Sex: Female

DRUGS (4)
  1. OPSUMIT [Suspect]
     Active Substance: MACITENTAN
     Indication: PULMONARY ARTERIAL HYPERTENSION
     Dosage: 10 MG, QD
     Route: 048
     Dates: start: 20140127
  2. TYVASO [Suspect]
     Active Substance: TREPROSTINIL
     Indication: PRODUCT USED FOR UNKNOWN INDICATION
     Dosage: 6 BREATHS, 4XDAILY
     Route: 055
  3. WARFARIN [Concomitant]
     Active Substance: WARFARIN
  4. LETAIRIS [Concomitant]
     Active Substance: AMBRISENTAN
     Dosage: UNK

REACTIONS (9)
  - Fatigue [Unknown]
  - Anxiety [Unknown]
  - Weight increased [Unknown]
  - Cough [Unknown]
  - Respiratory tract congestion [Unknown]
  - Dyskinesia [Unknown]
  - Blood count abnormal [Unknown]
  - Pneumonia [Unknown]
  - Dyspnoea [Unknown]
